FAERS Safety Report 11693264 (Version 1)
Quarter: 2015Q4

REPORT INFORMATION
  Report Type: Spontaneous
  Country: US (occurrence: None)
  Receive Date: 20151102
  Receipt Date: 20151102
  Transmission Date: 20160304
  Serious: No
  Sender: FDA-Public Use
  Company Number: None

PATIENT
  Age: 24 Year
  Sex: Male
  Weight: 77.11 kg

DRUGS (4)
  1. FISH OIL VITAMIN [Concomitant]
  2. METHYLPHENIDATE. [Suspect]
     Active Substance: METHYLPHENIDATE
     Indication: ATTENTION DEFICIT/HYPERACTIVITY DISORDER
     Dosage: 1 PILL ONCE DAILY
     Route: 048
     Dates: start: 20151027, end: 20151030
  3. IBUPROFEN. [Concomitant]
     Active Substance: IBUPROFEN
  4. MENS ONE-A-DAY MULTI-VITAMIN [Concomitant]

REACTIONS (3)
  - Insomnia [None]
  - Product substitution issue [None]
  - Drug ineffective [None]

NARRATIVE: CASE EVENT DATE: 20151026
